FAERS Safety Report 4498719-X (Version None)
Quarter: 2004Q4

REPORT INFORMATION
  Report Type: 
  Country: None (occurrence: None)
  Receive Date: 20041108
  Receipt Date: 20041025
  Transmission Date: 20050328
  Serious: Yes (Death, Life-Threatening, Hospitalization)
  Sender: FDA-Public Use
  Company Number: 402825410/PHRM2004FR02110

PATIENT
  Age: 42 Year
  Weight: 108 kg

DRUGS (5)
  1. INDYCIANINE GREEN [Suspect]
     Dosage: 6 ML, IV
     Route: 042
     Dates: start: 20040614
  2. AK-FLUOR 10%, AKORN [Suspect]
     Indication: ANGIOGRAM RETINA
     Dosage: 5 ML, IV
     Route: 042
     Dates: start: 20040614
  3. MYDRIATICUM EYE DROPS [Concomitant]
  4. NEOSYNEPHRINE EYE DROPS [Concomitant]
  5. XALACOM (LATANOPROST) [Concomitant]

REACTIONS (25)
  - ACCIDENT [None]
  - ANAPHYLACTIC SHOCK [None]
  - ASPIRATION [None]
  - CARDIO-RESPIRATORY ARREST [None]
  - CARDIOVASCULAR DISORDER [None]
  - COMA [None]
  - CONVULSION [None]
  - CYTOLYTIC HEPATITIS [None]
  - DIALYSIS [None]
  - DYSGEUSIA [None]
  - HAEMODYNAMIC INSTABILITY [None]
  - HEPATIC FAILURE [None]
  - INTESTINAL ISCHAEMIA [None]
  - LACTIC ACIDOSIS [None]
  - LOSS OF CONSCIOUSNESS [None]
  - MALAISE [None]
  - MULTI-ORGAN FAILURE [None]
  - MYOCARDIAL ISCHAEMIA [None]
  - PHARMACEUTICAL PRODUCT COMPLAINT [None]
  - PLATELET COUNT DECREASED [None]
  - PROTHROMBIN LEVEL DECREASED [None]
  - RETINAL DISORDER [None]
  - SHOCK [None]
  - UVEITIS [None]
  - VENTRICULAR FIBRILLATION [None]
